FAERS Safety Report 7800888-8 (Version None)
Quarter: 2011Q4

REPORT INFORMATION
  Report Type: 
  Country: None (occurrence: None)
  Receive Date: 20111006
  Receipt Date: 20110930
  Transmission Date: 20120403
  Serious: Yes (Hospitalization, Disabling)
  Sender: FDA-Public Use
  Company Number: US-MERCK-1107USA02158

PATIENT
  Age: 42 Year
  Sex: Female

DRUGS (18)
  1. VITAMIN D (UNSPECIFIED) [Concomitant]
     Route: 065
  2. VITAMIN B (UNSPECIFIED) [Concomitant]
     Route: 065
  3. ASCORBIC ACID [Concomitant]
     Route: 065
  4. VITAMIN E [Concomitant]
     Route: 065
  5. ALENDRONATE SODIUM AND CHOLECALCIFEROL [Suspect]
     Route: 065
  6. FOSAMAX [Suspect]
     Indication: OSTEOPENIA
     Route: 048
     Dates: start: 19950101, end: 20080101
  7. CALTRATE + D [Concomitant]
     Indication: OSTEOPENIA
     Dosage: TO PRESENT
     Route: 065
     Dates: start: 19940101
  8. PATANOL [Concomitant]
     Indication: HYPERSENSITIVITY
     Route: 047
     Dates: start: 20050101, end: 20070101
  9. CALCIUM (UNSPECIFIED) AND VITAMIN D (UNSPECIFIED) [Concomitant]
     Route: 065
  10. COUMADIN [Concomitant]
     Dosage: TO PRESENT
     Route: 065
     Dates: start: 19920101
  11. PATADAY [Concomitant]
     Dosage: TO PRESENT
     Route: 047
     Dates: start: 20070101
  12. FOSAMAX [Suspect]
     Dosage: TO PRESENT
     Route: 048
     Dates: start: 20080201
  13. CORTICOSTEROIDS (UNSPECIFIED) [Concomitant]
     Route: 065
     Dates: start: 19800101, end: 20040101
  14. FOSAMAX [Suspect]
     Indication: OSTEOPOROSIS
     Route: 048
     Dates: start: 19950101, end: 20080101
  15. CALTRATE + D [Concomitant]
     Indication: OSTEOPOROSIS
     Dosage: TO PRESENT
     Route: 065
     Dates: start: 19940101
  16. ZYRTEC [Concomitant]
     Indication: HYPERSENSITIVITY
     Route: 065
     Dates: start: 19930101, end: 20060101
  17. FOSAMAX [Suspect]
     Dosage: TO PRESENT
     Route: 048
     Dates: start: 20080201
  18. ASPIRIN [Concomitant]
     Indication: MIGRAINE
     Dosage: TO PRESENT
     Route: 065
     Dates: start: 19920101

REACTIONS (20)
  - BLADDER DISORDER [None]
  - TREMOR [None]
  - RIB FRACTURE [None]
  - DYSPEPSIA [None]
  - ADVERSE EVENT [None]
  - ASTHMA [None]
  - DEPRESSION [None]
  - TOOTH DISORDER [None]
  - GASTRITIS [None]
  - LOSS OF CONSCIOUSNESS [None]
  - HOT FLUSH [None]
  - SINUS DISORDER [None]
  - ANKLE FRACTURE [None]
  - SECRETION DISCHARGE [None]
  - FEMORAL NECK FRACTURE [None]
  - MENTAL DISORDER [None]
  - VOCAL CORD DISORDER [None]
  - WRIST FRACTURE [None]
  - BONE DISORDER [None]
  - ANXIETY [None]
